FAERS Safety Report 7462808-8 (Version None)
Quarter: 2011Q2

REPORT INFORMATION
  Report Type: 
  Country: None (occurrence: None)
  Receive Date: 20110506
  Receipt Date: 20110422
  Transmission Date: 20111010
  Serious: Yes (Hospitalization)
  Sender: FDA-Public Use
  Company Number: JP-JNJFOC-20090506119

PATIENT
  Sex: Female
  Weight: 53 kg

DRUGS (7)
  1. MEVALOTIN [Concomitant]
     Indication: HYPERLIPIDAEMIA
     Route: 048
  2. RHEUMATREX [Suspect]
     Indication: RHEUMATOID ARTHRITIS
     Route: 048
  3. REMICADE [Suspect]
     Dosage: TOTAL NUMBER OF INFUSIONS = 1
     Route: 042
     Dates: start: 20070109, end: 20091218
  4. MUCOSTA [Concomitant]
     Indication: GASTROINTESTINAL DISORDER THERAPY
     Route: 048
  5. REMICADE [Suspect]
     Indication: RHEUMATOID ARTHRITIS
     Dosage: TOTAL NUMBER OF INFUSIONS = 1
     Route: 042
     Dates: start: 20070109, end: 20091218
  6. EVISTA [Concomitant]
     Indication: OSTEOPOROSIS
     Route: 048
  7. ETODOLAC [Concomitant]
     Indication: RHEUMATOID ARTHRITIS
     Route: 048

REACTIONS (1)
  - B-CELL LYMPHOMA [None]
